FAERS Safety Report 13806100 (Version 4)
Quarter: 2018Q2

REPORT INFORMATION
  Report Type: Report from Study
  Country: BR (occurrence: BR)
  Receive Date: 20170728
  Receipt Date: 20180501
  Transmission Date: 20180711
  Serious: Yes (Hospitalization, Other)
  Sender: FDA-Public Use
  Company Number: PHHY2017BR095705

PATIENT
  Age: 38 Year
  Sex: Male
  Weight: 55 kg

DRUGS (18)
  1. PREDNISONE. [Concomitant]
     Active Substance: PREDNISONE
     Indication: ASTHMA
     Dosage: 2 DF, QD
     Route: 048
  2. MIDAZOLAM [Concomitant]
     Active Substance: MIDAZOLAM HYDROCHLORIDE
     Indication: SLEEP DISORDER
     Dosage: 1 DF, QD
     Route: 048
  3. BAMIFIX [Concomitant]
     Active Substance: BAMIFYLLINE HYDROCHLORIDE
     Indication: ASTHMA
     Dosage: 1 DF, BID
     Route: 048
  4. GLIFAGE [Concomitant]
     Active Substance: METFORMIN HYDROCHLORIDE
     Indication: PRODUCT USED FOR UNKNOWN INDICATION
     Dosage: 2 DF, QD
     Route: 048
  5. ZOLPIDEM [Concomitant]
     Active Substance: ZOLPIDEM\ZOLPIDEM TARTRATE
     Indication: DEPRESSION
     Route: 048
  6. XOLAIR [Suspect]
     Active Substance: OMALIZUMAB
     Dosage: 300 MG, QMO (STARTED 9 YEARS AGO, STOPPED IN JAN)
     Route: 058
     Dates: start: 2010
  7. FORASEQ [Suspect]
     Active Substance: BUDESONIDE\FORMOTEROL FUMARATE
     Indication: ASTHMA
     Dosage: 1 DF, TID
     Route: 065
  8. AEROLIN [Concomitant]
     Active Substance: ALBUTEROL
     Indication: ASTHMA
     Dosage: 2 APPLICATION
     Route: 055
  9. DUOVENT [Concomitant]
     Active Substance: FENOTEROL HYDROBROMIDE
     Indication: ASTHMA
     Dosage: 2 APPLICATION
     Route: 055
  10. CALCIUM [Concomitant]
     Active Substance: CALCIUM
     Indication: OSTEOPOROSIS
     Dosage: 1 DF, BID
     Route: 048
  11. SPIRIVA [Concomitant]
     Active Substance: TIOTROPIUM BROMIDE MONOHYDRATE
     Indication: ASTHMA
     Dosage: UNK UNK, QD
     Route: 055
  12. DUOVENT N [Concomitant]
     Active Substance: FENOTEROL HYDROBROMIDE\IPRATROPIUM BROMIDE
     Indication: MALAISE
     Dosage: UNK UNK, PRN
     Route: 065
  13. SEEBRI [Concomitant]
     Active Substance: GLYCOPYRRONIUM
     Indication: ASTHMA
     Dosage: UNK UNK, QD
     Route: 055
     Dates: start: 20151220
  14. BUSONID [Concomitant]
     Active Substance: BUDESONIDE
     Indication: SINUSITIS
     Dosage: 32 MG, QD
     Route: 045
  15. XOLAIR [Suspect]
     Active Substance: OMALIZUMAB
     Dosage: UNK
     Route: 058
     Dates: start: 201701, end: 201701
  16. SERTRALINE [Concomitant]
     Active Substance: SERTRALINE HYDROCHLORIDE
     Indication: DEPRESSION
     Dosage: UNK UNK, QD
     Route: 048
  17. XOLAIR [Suspect]
     Active Substance: OMALIZUMAB
     Indication: ASTHMA
     Dosage: 300 MG, QMO (STARTED 9 YEARS AGO, STOPPED IN JAN)
     Route: 058
     Dates: start: 2009
  18. ALPRAZOLAM. [Concomitant]
     Active Substance: ALPRAZOLAM
     Indication: ANXIETY
     Dosage: 1 DF, BID
     Route: 048

REACTIONS (24)
  - Mobility decreased [Unknown]
  - Hepatitis B [Unknown]
  - Cardiac function test abnormal [Unknown]
  - Muscle atrophy [Unknown]
  - Malaise [Unknown]
  - Infarction [Unknown]
  - Diabetes mellitus [Unknown]
  - Cataract [Unknown]
  - Asthenia [Unknown]
  - Asthmatic crisis [Not Recovered/Not Resolved]
  - Chronic kidney disease [Unknown]
  - Cushing^s syndrome [Unknown]
  - Weight decreased [Unknown]
  - Cardiac disorder [Unknown]
  - Renal disorder [Unknown]
  - Hepatic function abnormal [Unknown]
  - Endocrine disorder [Unknown]
  - Bronchitis [Unknown]
  - Dyspnoea [Unknown]
  - Secretion discharge [Unknown]
  - Liver disorder [Unknown]
  - Blood pressure increased [Unknown]
  - Asthma [Not Recovered/Not Resolved]
  - Total lung capacity decreased [Unknown]

NARRATIVE: CASE EVENT DATE: 201706
